FAERS Safety Report 9528021 (Version 1)
Quarter: 2013Q3

REPORT INFORMATION
  Report Type: Spontaneous
  Country: US (occurrence: US)
  Receive Date: 20130917
  Receipt Date: 20130917
  Transmission Date: 20140515
  Serious: No
  Sender: FDA-Public Use
  Company Number: US-009507513-1308USA014963

PATIENT
  Sex: 0
  Weight: 99.77 kg

DRUGS (2)
  1. TEMODAR [Suspect]
     Dosage: 345 MG, UNK
     Route: 048
  2. TEMODAR [Suspect]
     Dosage: 460 MG, UNK
     Route: 048

REACTIONS (1)
  - Therapy change [Unknown]
